FAERS Safety Report 10203937 (Version 2)
Quarter: 2014Q2

REPORT INFORMATION
  Report Type: Spontaneous
  Country: US (occurrence: US)
  Receive Date: 20140529
  Receipt Date: 20140529
  Transmission Date: 20141212
  Serious: No
  Sender: FDA-Public Use
  Company Number: US-MYLANLABS-2014S1003889

PATIENT
  Age: 38 Year
  Sex: Female
  Weight: 57.61 kg

DRUGS (3)
  1. BUPROPION HYDROCHLORIDE TABLETS [Suspect]
     Indication: ANXIETY
     Route: 048
     Dates: start: 20140214, end: 20140218
  2. BUPROPION HYDROCHLORIDE TABLETS [Suspect]
     Indication: DEPRESSION
     Route: 048
     Dates: start: 20140214, end: 20140218
  3. TOPIRAMATE [Concomitant]

REACTIONS (5)
  - Drug effect increased [Recovered/Resolved]
  - Suicidal ideation [Recovered/Resolved]
  - Panic attack [Recovered/Resolved]
  - Anxiety [Recovered/Resolved]
  - Emotional distress [Recovered/Resolved]
